FAERS Safety Report 10276964 (Version 4)
Quarter: 2014Q4

REPORT INFORMATION
  Report Type: Spontaneous
  Country: IT (occurrence: IT)
  Receive Date: 20140703
  Receipt Date: 20141019
  Transmission Date: 20150528
  Serious: Yes (Hospitalization, Other)
  Sender: FDA-Public Use
  Company Number: IT-BRISTOL-MYERS SQUIBB COMPANY-21121132

PATIENT
  Age: 20 Year
  Sex: Male

DRUGS (11)
  1. SINVACOR [Concomitant]
     Active Substance: SIMVASTATIN
     Dosage: FILM COATED TABS
     Route: 048
  2. AMIODAR [Concomitant]
     Active Substance: AMIODARONE
     Dosage: 1DF:200 UNIT NOS;20 TABS
     Route: 048
  3. LORTAAN [Concomitant]
     Active Substance: LOSARTAN POTASSIUM
     Dosage: FILM COATED TABS,28
     Route: 048
  4. NOVORAPID [Suspect]
     Active Substance: INSULIN ASPART
     Dosage: 1DF:100 UNIT/ML PENFILL IN CARTRIDGE 1 X 3 ML?DURATION:4 YEARS?RECENT DOSE ON:18JUN14
     Route: 058
     Dates: start: 20101007
  5. HUMALOG [Suspect]
     Active Substance: INSULIN LISPRO
     Dosage: INJECTION?1DF:100 U/ML PENFILL IN CARTRIDGE 1 X 3 ML (3.5 MG/ML)?DURATION:734 DAYS
     Route: 058
     Dates: start: 20111101
  6. DEPAKIN [Concomitant]
     Active Substance: VALPROATE SODIUM
     Dosage: 30 TABS
  7. GLUCOPHAGE [Suspect]
     Active Substance: METFORMIN HYDROCHLORIDE
     Dosage: DURATION: 4YEARS?RECENT DOSE ON 18JUN14
     Route: 048
     Dates: start: 20101007
  8. LANTUS [Suspect]
     Active Substance: INSULIN GLARGINE
     Dosage: 1DF:100 UNITS/ML PENFILL IN CARTRIDGE 1 X 3 ML?7OCT10-12FEB14;1JAN11-4NOV13?DURATION:3 YEARS
     Route: 058
     Dates: start: 20101007
  9. COUMADIN [Concomitant]
     Active Substance: WARFARIN SODIUM
     Dosage: 1DF:30 TABS
  10. LASIX [Concomitant]
     Active Substance: FUROSEMIDE
     Dosage: 30TABS
     Route: 048
  11. LANOXIN [Concomitant]
     Active Substance: DIGOXIN
     Dosage: 1DF:0.0625 UNIT NOS, 30 TABS

REACTIONS (5)
  - Overdose [Unknown]
  - Lip injury [Recovered/Resolved]
  - Epilepsy [Recovered/Resolved]
  - Hypoglycaemia [Recovered/Resolved]
  - Fall [Unknown]

NARRATIVE: CASE EVENT DATE: 20131030
